FAERS Safety Report 7650670-X (Version None)
Quarter: 2011Q3

REPORT INFORMATION
  Report Type: 
  Country: None (occurrence: None)
  Receive Date: 20110802
  Receipt Date: 20110728
  Transmission Date: 20111222
  Serious: Yes (Other)
  Sender: FDA-Public Use
  Company Number: GXKR2011DE01989

PATIENT
  Sex: Male
  Weight: 72 kg

DRUGS (2)
  1. GABAPENTIN [Suspect]
     Dosage: 200 MG, TID
     Route: 048
  2. GABAPENTIN [Suspect]
     Indication: NEURALGIA
     Dosage: 100 MG, TID
     Route: 048

REACTIONS (7)
  - DYSPHAGIA [None]
  - VOCAL CORD PARALYSIS [None]
  - HEADACHE [None]
  - SPEECH DISORDER [None]
  - DYSPNOEA [None]
  - COUGH [None]
  - EAR PAIN [None]
